FAERS Safety Report 5217199-X (Version None)
Quarter: 2007Q1

REPORT INFORMATION
  Report Type: 
  Country: None (occurrence: None)
  Receive Date: 20070123
  Receipt Date: 20070123
  Transmission Date: 20070707
  Serious: Yes (Death, Life-Threatening, Hospitalization)
  Sender: FDA-Public Use
  Company Number: None

PATIENT
  Sex: Male
  Weight: 76.2043 kg

DRUGS (9)
  1. GEMCITABINE [Suspect]
     Indication: PLEURAL MESOTHELIOMA
     Dosage: 1000MG/M2 IV EVERY 14 DAYS
     Route: 042
     Dates: start: 20061227, end: 20070111
  2. OXALIPLATIN [Suspect]
     Indication: PLEURAL MESOTHELIOMA
     Dosage: 100MG/M2 IV EVERY 14 DAYS
     Route: 042
     Dates: start: 20061227, end: 20070111
  3. ALTACE [Concomitant]
  4. PROSCAR [Concomitant]
  5. FOLIC ACID [Concomitant]
  6. ZOCOR [Concomitant]
  7. NIASPAN [Concomitant]
  8. ASPIRIN [Concomitant]
  9. HYDROCHLOROTHIAZIDE [Concomitant]

REACTIONS (3)
  - ANAEMIA [None]
  - PULMONARY EMBOLISM [None]
  - RESPIRATORY DISTRESS [None]
